FAERS Safety Report 18083903 (Version 2)
Quarter: 2020Q4

REPORT INFORMATION
  Report Type: Spontaneous
  Country: US (occurrence: US)
  Receive Date: 20200729
  Receipt Date: 20201127
  Transmission Date: 20210113
  Serious: Yes (Hospitalization, Other)
  Sender: FDA-Public Use
  Company Number: US-ABBVIE-20K-163-3500421-00

PATIENT
  Sex: Male
  Weight: 62.65 kg

DRUGS (2)
  1. HUMIRA [Suspect]
     Active Substance: ADALIMUMAB
     Indication: CROHN^S DISEASE
     Route: 058
     Dates: start: 2019
  2. HUMIRA [Suspect]
     Active Substance: ADALIMUMAB
     Indication: CROHN^S DISEASE
     Route: 058
     Dates: start: 2019, end: 2019

REACTIONS (5)
  - Anal fistula [Not Recovered/Not Resolved]
  - Anal inflammation [Not Recovered/Not Resolved]
  - Anal stenosis [Recovering/Resolving]
  - Anal abscess [Recovered/Resolved]
  - Anorectal discomfort [Not Recovered/Not Resolved]

NARRATIVE: CASE EVENT DATE: 2019
